FAERS Safety Report 16665083 (Version 1)
Quarter: 2019Q3

REPORT INFORMATION
  Report Type: Spontaneous
  Country: NL (occurrence: NL)
  Receive Date: 20190803
  Receipt Date: 20190803
  Transmission Date: 20191004
  Serious: Yes (Death)
  Sender: FDA-Public Use
  Company Number: NL-AUROBINDO-AUR-APL-2019-044827

PATIENT

DRUGS (4)
  1. PREDNISONE. [Suspect]
     Active Substance: PREDNISONE
     Indication: PRODUCT USED FOR UNKNOWN INDICATION
     Dosage: 20 MG, UNK
     Route: 065
  2. FUROSEMIDE. [Suspect]
     Active Substance: FUROSEMIDE
     Indication: PRODUCT USED FOR UNKNOWN INDICATION
     Dosage: UNK
     Route: 065
  3. SODIUM CHLORIDE. [Suspect]
     Active Substance: SODIUM CHLORIDE
     Indication: PRODUCT USED FOR UNKNOWN INDICATION
     Dosage: 9 MILLIGRAM PER MILLILITRE, UNK
     Route: 065
  4. AMOXICILLIN CAPSULES [Suspect]
     Active Substance: AMOXICILLIN
     Indication: PRODUCT USED FOR UNKNOWN INDICATION
     Dosage: 500 MG, UNK
     Route: 065

REACTIONS (14)
  - Nasopharyngitis [Fatal]
  - Productive cough [Fatal]
  - Weight decreased [Fatal]
  - Dyspnoea [Fatal]
  - Hallucination [Fatal]
  - Oedema [Fatal]
  - Confusional state [Fatal]
  - Hypersomnia [Fatal]
  - Pyrexia [Fatal]
  - Depressed mood [Fatal]
  - Fluid intake reduced [Fatal]
  - Cough [Fatal]
  - Upper respiratory tract infection [Fatal]
  - Wheezing [Fatal]
